FAERS Safety Report 23359950 (Version 1)
Quarter: 2024Q1

REPORT INFORMATION
  Report Type: Spontaneous
  Country: ES (occurrence: ES)
  Receive Date: 20240103
  Receipt Date: 20240103
  Transmission Date: 20240410
  Serious: Yes (Hospitalization, Other)
  Sender: FDA-Public Use
  Company Number: ES-BAXTER-2023BAX025104

PATIENT
  Age: 65 Year
  Sex: Male
  Weight: 89 kg

DRUGS (33)
  1. CYCLOPHOSPHAMIDE [Suspect]
     Active Substance: CYCLOPHOSPHAMIDE
     Indication: Non-Hodgkin^s lymphoma
     Dosage: 1490 MG, EVERY 3 WEEKS
     Route: 042
     Dates: start: 20230529
  2. DOXORUBICIN [Suspect]
     Active Substance: DOXORUBICIN
     Indication: Non-Hodgkin^s lymphoma
     Dosage: 100 MG, EVERY 3 WEEKS
     Route: 042
     Dates: start: 20230529
  3. EPCORITAMAB [Suspect]
     Active Substance: EPCORITAMAB
     Indication: Non-Hodgkin^s lymphoma
     Dosage: 0.16 MG PRIMING DOSE C1, D1, TOTAL
     Route: 058
     Dates: start: 20230529, end: 20230529
  4. EPCORITAMAB [Suspect]
     Active Substance: EPCORITAMAB
     Dosage: 0.8 MG INTERMEDIATE DOSE C1, D8, TOTAL
     Route: 058
     Dates: start: 20230605, end: 20230605
  5. EPCORITAMAB [Suspect]
     Active Substance: EPCORITAMAB
     Dosage: 48 MG FULL DOSE, EVERY 1 WEEKS
     Route: 058
     Dates: start: 20230612
  6. IBRUTINIB [Suspect]
     Active Substance: IBRUTINIB
     Dosage: 1000 MG, EVERY 1 DAYS
     Route: 065
     Dates: start: 20230612
  7. IBRUTINIB [Suspect]
     Active Substance: IBRUTINIB
     Indication: Non-Hodgkin^s lymphoma
     Dosage: NOT ADMINISTERED
  8. POLATUZUMAB VEDOTIN [Suspect]
     Active Substance: POLATUZUMAB VEDOTIN
     Indication: Non-Hodgkin^s lymphoma
     Dosage: 160 MG, EVERY 3 WEEKS
     Route: 042
     Dates: start: 20230529
  9. PREDNISONE [Suspect]
     Active Substance: PREDNISONE
     Indication: Non-Hodgkin^s lymphoma
     Dosage: 100 MG DAYS 1 TO 5, EVERY 1 DAYS
     Route: 048
     Dates: start: 20230529
  10. RITUXIMAB [Suspect]
     Active Substance: RITUXIMAB
     Indication: Non-Hodgkin^s lymphoma
     Dosage: 745 MG, EVERY 3 WEEKS
     Route: 042
     Dates: start: 20230529
  11. VENETOCLAX [Suspect]
     Active Substance: VENETOCLAX
     Indication: Non-Hodgkin^s lymphoma
     Dosage: NOT ADMINISTERED
  12. ACYCLOVIR [Concomitant]
     Active Substance: ACYCLOVIR
     Indication: Antiviral prophylaxis
     Dosage: 800 MG, EVERY 1 DAYS
     Route: 065
     Dates: start: 20230526
  13. ALOPURINOL HF [Concomitant]
     Indication: Prophylaxis
     Dosage: 300 MG, EVERY 1 DAYS
     Route: 065
     Dates: start: 20230529
  14. CALCIUM [Concomitant]
     Active Substance: CALCIUM
     Indication: Mineral supplementation
     Dosage: 600 MG, EVERY 1 DAYS
     Route: 065
     Dates: start: 20230612
  15. CALCIUM [Concomitant]
     Active Substance: CALCIUM
     Dosage: 600 MG, EVERY 1 DAYS ROUTE OF ADMIN (FREE TEXT): UNKNOWN ROUTE
     Route: 065
     Dates: start: 20230612
  16. CALCIUM [Concomitant]
     Active Substance: CALCIUM
     Dosage: 600 MG, EVERY 1 DAYS ROUTE OF ADMIN (FREE TEXT): UNKNOWN ROUTE
     Route: 065
     Dates: start: 20230612
  17. CHOLECALCIFEROL [Concomitant]
     Active Substance: CHOLECALCIFEROL
     Indication: Vitamin supplementation
     Dosage: 500 IU, EVERY 1 DAYS
     Route: 065
     Dates: start: 2023, end: 20230611
  18. DEXAMETHASONE [Concomitant]
     Active Substance: DEXAMETHASONE
     Indication: Premedication
     Dosage: 16 MG, FREQUENCY NOT REPORTED
     Route: 065
     Dates: start: 20230605
  19. DEXCHLORPHENIRAMINE [Concomitant]
     Active Substance: DEXCHLORPHENIRAMINE
     Indication: Premedication
     Dosage: 5 MG, EVERY 1 WEEKS
     Route: 065
     Dates: start: 20230529
  20. FILGRASTIM [Concomitant]
     Active Substance: FILGRASTIM
     Indication: Neutropenia
     Dosage: 300 UG, FREQUENCY NOT REPORTED
     Route: 065
     Dates: start: 20230605
  21. IBUPROFEN [Concomitant]
     Active Substance: IBUPROFEN
     Indication: Pain prophylaxis
     Dosage: 600 MG, AS NECESSARY
     Route: 065
     Dates: start: 2023, end: 20230611
  22. METHYLPREDNISOLONE [Concomitant]
     Active Substance: METHYLPREDNISOLONE
     Indication: Product used for unknown indication
     Dosage: 16 MG, EVERY 1 WEEKS
     Route: 065
     Dates: start: 20230529
  23. METOCLOPRAMIDE [Concomitant]
     Active Substance: METOCLOPRAMIDE
     Indication: Prophylaxis of nausea and vomiting
     Dosage: 10 MG, AS NECESSARY
     Route: 065
     Dates: start: 20230612
  24. OMEPRAZOLE [Concomitant]
     Active Substance: OMEPRAZOLE
     Indication: Gastrointestinal disorder prophylaxis
     Dosage: 20 MG, EVERY 1 DAYS
     Route: 065
     Dates: start: 20230612
  25. ONDANSETRON [Concomitant]
     Active Substance: ONDANSETRON
     Indication: Premedication
     Dosage: 8 MG, EVERY 3 WEEKS
     Route: 065
     Dates: start: 20230529
  26. ONDANSETRON [Concomitant]
     Active Substance: ONDANSETRON
     Indication: Prophylaxis of nausea and vomiting
     Dosage: 8 MG, AS NECESSARY
     Route: 065
     Dates: start: 20230529, end: 20230611
  27. ACETAMINOPHEN [Concomitant]
     Active Substance: ACETAMINOPHEN
     Indication: Pain prophylaxis
     Dosage: 1 G, EVERY 1 WEEKS
     Route: 065
     Dates: start: 20230529
  28. ACETAMINOPHEN [Concomitant]
     Active Substance: ACETAMINOPHEN
     Indication: Premedication
     Dosage: 1 G, AS NECESSARY
     Route: 065
     Dates: start: 2023, end: 20230611
  29. SALINE [Concomitant]
     Active Substance: SODIUM CHLORIDE
     Indication: Premedication
     Dosage: 500 ML, FREQUENCY NOT REPORTED
     Route: 065
     Dates: start: 20230529
  30. SALINE [Concomitant]
     Active Substance: SODIUM CHLORIDE
     Dosage: 500 ML, FREQUENCY NOT REPORTED ROUTE OF ADMIN (FREE TEXT): UNKNOWN ROUTE
     Route: 065
     Dates: start: 20230529
  31. SALINE [Concomitant]
     Active Substance: SODIUM CHLORIDE
     Dosage: 500 ML, FREQUENCY NOT REPORTED ROUTE OF ADMIN (FREE TEXT): UNKNOWN ROUTE
     Route: 065
     Dates: start: 20230529
  32. SULFAMETHOXAZOLE\TRIMETHOPRIM [Concomitant]
     Active Substance: SULFAMETHOXAZOLE\TRIMETHOPRIM
     Indication: Prophylaxis
     Dosage: 800 MG, FREQUENCY NOT REPORTED
     Route: 065
     Dates: start: 20230526
  33. TRIMETHOPRIM NTN [Concomitant]
     Indication: Prophylaxis
     Dosage: 160 MG, FREQUENCY NOT REPORTED
     Route: 065
     Dates: start: 20230526

REACTIONS (2)
  - Cytokine release syndrome [Recovered/Resolved]
  - Pyrexia [Recovered/Resolved]

NARRATIVE: CASE EVENT DATE: 20230612
